FAERS Safety Report 21922854 (Version 1)
Quarter: 2023Q1

REPORT INFORMATION
  Report Type: Spontaneous
  Country: DE (occurrence: DE)
  Receive Date: 20230128
  Receipt Date: 20230128
  Transmission Date: 20230418
  Serious: Yes (Death)
  Sender: FDA-Public Use
  Company Number: DE-JNJFOC-20230136677

PATIENT
  Sex: Female
  Weight: 47 kg

DRUGS (3)
  1. DEXAMETHASONE [Suspect]
     Active Substance: DEXAMETHASONE
     Indication: Plasma cell myeloma
     Dosage: 20 MG (DURATION OF ADMINISTRATION: EVERY 10 DAYS)
     Route: 065
     Dates: start: 20221111, end: 20221121
  2. BENDAMUSTINE [Suspect]
     Active Substance: BENDAMUSTINE
     Indication: Plasma cell myeloma
     Dosage: 97 MG (DURATION OF ADMINISTRATION: EVERY 3 DAYS)
     Route: 065
     Dates: start: 20221111, end: 20221114
  3. VELCADE [Suspect]
     Active Substance: BORTEZOMIB
     Indication: Plasma cell myeloma
     Dosage: 1.8 MG
     Route: 065
     Dates: start: 20221121

REACTIONS (1)
  - Pneumonia [Fatal]
